FAERS Safety Report 5124758-1 (Version None)
Quarter: 2006Q4

REPORT INFORMATION
  Report Type: 
  Country: None (occurrence: None)
  Receive Date: 20061006
  Receipt Date: 20061006
  Transmission Date: 20070319
  Serious: Yes (Life-Threatening, Hospitalization)
  Sender: FDA-Public Use
  Company Number: None

PATIENT
  Age: 61 Year
  Sex: Male
  Weight: 107.3 kg

DRUGS (9)
  1. PIPERACILLIN AND TAZOBACTAM [Suspect]
     Indication: PNEUMONIA ASPIRATION
     Dosage: 45G IV Q 6H [2 DOSES]
     Route: 042
     Dates: start: 20061004, end: 20061004
  2. ARIPIPRAZOLE [Concomitant]
  3. ACETAMINOPHEN [Concomitant]
  4. PROCHLORPERAZINE [Concomitant]
  5. OMEPRAZOLE [Concomitant]
  6. VENLAFAXINE HCL EXTENDED-RELEASE [Concomitant]
  7. SERTRALINE [Concomitant]
  8. CLONAZEPAM [Concomitant]
  9. CEFAZOLIN [Concomitant]

REACTIONS (3)
  - CHILLS [None]
  - HYPERTENSION [None]
  - WHEEZING [None]
